FAERS Safety Report 8470818-7 (Version None)
Quarter: 2012Q2

REPORT INFORMATION
  Report Type: 
  Country: None (occurrence: None)
  Receive Date: 20120627
  Receipt Date: 20120618
  Transmission Date: 20120825
  Serious: Yes (Hospitalization, Other)
  Sender: FDA-Public Use
  Company Number: US-JNJFOC-20120211833

PATIENT
  Sex: Female
  Weight: 91.63 kg

DRUGS (21)
  1. REMICADE [Suspect]
     Dosage: APPROX. NO. OF INFUSION 53
     Route: 042
     Dates: start: 20120516
  2. MOBIC [Concomitant]
     Route: 048
  3. DARVOCET-N 50 [Concomitant]
  4. REMICADE [Suspect]
     Route: 042
     Dates: start: 20070101, end: 20110101
  5. NEXIUM [Concomitant]
     Indication: GASTROOESOPHAGEAL REFLUX DISEASE
     Route: 048
  6. CALCIUM [Concomitant]
     Indication: MEDICAL DIET
  7. LORAZEPAM [Concomitant]
     Indication: ANXIETY
     Dates: start: 20040101
  8. ACETAMINOPHEN [Concomitant]
     Indication: ARTHRALGIA
     Route: 048
     Dates: start: 20020101
  9. DOCUSATE [Concomitant]
     Indication: CONSTIPATION
     Dates: start: 20070101
  10. HYDROCHLOROTHIAZIDE [Concomitant]
     Indication: BLOOD PRESSURE
     Route: 048
  11. MECLIZINE [Concomitant]
     Indication: VERTIGO
  12. MELOXICAM [Concomitant]
     Indication: RHEUMATOID ARTHRITIS
     Route: 048
  13. VESICARE [Concomitant]
     Indication: INCONTINENCE
     Route: 048
  14. REMICADE [Suspect]
     Indication: RHEUMATOID ARTHRITIS
     Route: 042
     Dates: start: 20110101
  15. METHOTREXATE [Suspect]
     Indication: RHEUMATOID ARTHRITIS
     Dates: start: 19980101, end: 20050101
  16. ENALAPRIL MALEATE [Concomitant]
     Indication: HYPERTENSION
     Route: 048
  17. REMICADE [Suspect]
     Route: 042
     Dates: start: 20030930
  18. REMICADE [Suspect]
     Route: 042
     Dates: end: 20070101
  19. FOLIC ACID [Concomitant]
     Indication: MEDICAL DIET
     Dates: start: 20070101
  20. M.V.I. [Concomitant]
     Indication: VITAMIN SUPPLEMENTATION
     Dates: start: 20020101
  21. ASCORBIC ACID [Concomitant]
     Indication: MEDICAL DIET
     Dates: start: 20100101

REACTIONS (14)
  - BREAST CANCER [None]
  - LYMPHADENOPATHY [None]
  - BLADDER PROLAPSE [None]
  - SIALOADENITIS [None]
  - CYSTITIS [None]
  - CONSTIPATION [None]
  - BUNION [None]
  - HYPERTENSION [None]
  - THYROID NEOPLASM [None]
  - BLOOD THYROID STIMULATING HORMONE [None]
  - VITAMIN D DEFICIENCY [None]
  - HAEMATOMA [None]
  - HYPERTONIC BLADDER [None]
  - THERAPEUTIC RESPONSE DECREASED [None]
